APPROVED DRUG PRODUCT: URSODIOL
Active Ingredient: URSODIOL
Strength: 300MG
Dosage Form/Route: CAPSULE;ORAL
Application: A211301 | Product #001
Applicant: AMNEAL PHARMACEUTICALS CO GMBH
Approved: Oct 16, 2018 | RLD: No | RS: No | Type: DISCN